FAERS Safety Report 8465935 (Version 4)
Quarter: 2013Q1

REPORT INFORMATION
  Report Type: Report from Study
  Country: JP (occurrence: JP)
  Receive Date: 20120319
  Receipt Date: 20130204
  Transmission Date: 20140127
  Serious: Yes (Life-Threatening, Hospitalization)
  Sender: FDA-Public Use
  Company Number: JP-EISAI INC-E7389-02165-CLI-JP

PATIENT
  Age: 44 Year
  Sex: Female
  Weight: 61 kg

DRUGS (39)
  1. HALAVEN [Suspect]
     Indication: BREAST CANCER RECURRENT
     Route: 041
     Dates: start: 20111209, end: 20111209
  2. HALAVEN [Suspect]
     Indication: METASTASES TO LIVER
     Route: 041
     Dates: start: 20111216, end: 20111216
  3. HALAVEN [Suspect]
     Indication: METASTASES TO BONE
     Route: 041
     Dates: start: 20111230, end: 20111230
  4. HALAVEN [Suspect]
     Route: 041
     Dates: start: 20120106, end: 20120106
  5. HALAVEN [Suspect]
     Route: 041
     Dates: start: 20120120, end: 20120120
  6. HALAVEN [Suspect]
     Route: 041
     Dates: start: 20120203, end: 20120203
  7. HALAVEN [Suspect]
     Route: 041
     Dates: start: 20120210, end: 20120302
  8. HALAVEN [Suspect]
     Route: 041
     Dates: start: 20120323, end: 20120323
  9. HALAVEN [Suspect]
     Route: 041
     Dates: start: 20120518, end: 20120518
  10. HALAVEN [Suspect]
     Route: 041
     Dates: start: 20120525, end: 20120525
  11. HALAVEN [Suspect]
     Route: 041
     Dates: start: 20120607, end: 20120622
  12. HALAVEN [Suspect]
     Route: 041
     Dates: start: 20120706, end: 20120706
  13. TRASTUZUMAB [Concomitant]
     Indication: BREAST CANCER RECURRENT
  14. HYSRON-H [Concomitant]
     Indication: BREAST CANCER RECURRENT
  15. FEMARA [Concomitant]
     Indication: BREAST CANCER RECURRENT
  16. ALOXI [Concomitant]
     Indication: PROPHYLAXIS
     Route: 041
  17. ALOXI [Concomitant]
  18. TRAMAL [Concomitant]
     Route: 048
  19. TRAMAL [Concomitant]
  20. FAMOSTAGINE [Concomitant]
     Indication: PROPHYLAXIS
     Route: 048
  21. FAMOSTAGINE [Concomitant]
  22. PREGABALIN [Concomitant]
     Route: 048
  23. PREGABALIN [Concomitant]
  24. UNASYN [Concomitant]
     Route: 048
  25. UNASYN [Concomitant]
  26. DUROTEP [Concomitant]
  27. ZOMETA [Concomitant]
     Indication: METASTASES TO BONE
     Route: 041
  28. ZOMETA [Concomitant]
  29. GLYPHAGEN [Concomitant]
     Route: 041
  30. GLYPHAGEN [Concomitant]
  31. ADELAVIN-NO.9 [Concomitant]
     Route: 041
  32. ADELAVIN-NO.9 [Concomitant]
  33. ALLEGRA [Concomitant]
     Route: 048
  34. ALLEGRA [Concomitant]
  35. PASIL [Concomitant]
     Indication: PROPHYLAXIS
  36. FERROMIA [Concomitant]
     Indication: PROPHYLAXIS
     Route: 048
  37. FERROMIA [Concomitant]
  38. AMINOLEBAN [Concomitant]
     Indication: PROPHYLAXIS
     Route: 042
  39. MAGMITT [Concomitant]
     Indication: PROPHYLAXIS
     Route: 048

REACTIONS (5)
  - Circulatory collapse [Recovered/Resolved]
  - Leukopenia [Recovered/Resolved]
  - Epistaxis [Recovered/Resolved]
  - Febrile neutropenia [Recovering/Resolving]
  - Thrombocytopenia [Recovered/Resolved]
